FAERS Safety Report 5054398-4 (Version None)
Quarter: 2006Q3

REPORT INFORMATION
  Report Type: 
  Country: None (occurrence: None)
  Receive Date: 20060713
  Receipt Date: 20060710
  Transmission Date: 20061208
  Serious: Yes (Other)
  Sender: FDA-Public Use
  Company Number: 007969

PATIENT
  Sex: Female

DRUGS (4)
  1. MEDROXYPROGESTERONE ACETATE [Suspect]
     Dosage: ORAL
     Route: 048
  2. ESTRATEST (EMTHYLTESTOSTERONE, ESTROGENS ESTERIFIED) [Suspect]
     Dosage: ORAL
     Route: 048
  3. ESTROSTEP FE (NORETHISTERONE ACETATE, ETHINYLESTRADIOL, FERROUS FUMARA [Suspect]
     Dosage: ORAL
     Route: 048
  4. PREMARIN [Suspect]
     Dosage: ORAL
     Route: 048

REACTIONS (1)
  - OVARIAN CANCER [None]
